FAERS Safety Report 7788304-6 (Version None)
Quarter: 2011Q3

REPORT INFORMATION
  Report Type: 
  Country: None (occurrence: None)
  Receive Date: 20110927
  Receipt Date: 20110913
  Transmission Date: 20111222
  Serious: Yes (Other)
  Sender: FDA-Public Use
  Company Number: 1000024082

PATIENT
  Age: 41 Year
  Sex: Male

DRUGS (3)
  1. LEXAPRO [Suspect]
     Indication: DEPRESSION
     Dosage: 20 MG (20 MG, 1IN 1 D)
     Dates: start: 20110906
  2. ALPRAZOLAM (ALPRAZOLAM)(TABLETS)(ALPRAZOLAM) [Concomitant]
  3. LEXAPRO [Suspect]
     Indication: DEPRESSION
     Dosage: 10 MG (10 MG, 1 IN 1 D)
     Dates: start: 20110823, end: 20110905

REACTIONS (14)
  - NAUSEA [None]
  - DIZZINESS [None]
  - ANXIETY [None]
  - SUICIDAL IDEATION [None]
  - PALPITATIONS [None]
  - TINNITUS [None]
  - AGITATION [None]
  - HYPERHIDROSIS [None]
  - PANIC REACTION [None]
  - DRUG WITHDRAWAL SYNDROME [None]
  - HEADACHE [None]
  - VOMITING [None]
  - DECREASED APPETITE [None]
  - WEIGHT DECREASED [None]
